FAERS Safety Report 10488781 (Version 1)
Quarter: 2014Q4

REPORT INFORMATION
  Report Type: Spontaneous
  Country: US (occurrence: US)
  Receive Date: 20141002
  Receipt Date: 20141002
  Transmission Date: 20150528
  Serious: No
  Sender: FDA-Public Use
  Company Number: US-ELI_LILLY_AND_COMPANY-US201409004149

PATIENT
  Sex: Male

DRUGS (6)
  1. ASPIRIN. [Concomitant]
     Active Substance: ASPIRIN
  2. METOPROLOL [Concomitant]
     Active Substance: METOPROLOL
  3. EFFIENT [Suspect]
     Active Substance: PRASUGREL HYDROCHLORIDE
     Indication: STENT PLACEMENT
     Dosage: 10 MG, QD
     Route: 065
     Dates: start: 201403
  4. HYDROCHLOROTHIAZIDE. [Concomitant]
     Active Substance: HYDROCHLOROTHIAZIDE
  5. ATORVASTATIN [Concomitant]
     Active Substance: ATORVASTATIN
  6. LOSARTAN [Concomitant]
     Active Substance: LOSARTAN

REACTIONS (3)
  - Haemorrhage [Unknown]
  - Incorrect product storage [Unknown]
  - Contusion [Unknown]
